FAERS Safety Report 23912463 (Version 3)
Quarter: 2024Q2

REPORT INFORMATION
  Report Type: Report from Study
  Country: CH (occurrence: CH)
  Receive Date: 20240528
  Receipt Date: 20240621
  Transmission Date: 20240715
  Serious: Yes (Hospitalization)
  Sender: FDA-Public Use
  Company Number: CH-ABBVIE-5774406

PATIENT
  Age: 49 Year
  Sex: Female

DRUGS (2)
  1. CARBIDOPA\LEVODOPA [Suspect]
     Active Substance: CARBIDOPA\LEVODOPA
     Indication: Parkinson^s disease
     Dosage: MD: 2.0 ML, CRD: 2.9 ML/H, ED: 1.00 ML?FREQUENCY:16H
     Route: 050
     Dates: start: 20240528
  2. CARBIDOPA\LEVODOPA [Suspect]
     Active Substance: CARBIDOPA\LEVODOPA
     Dosage: MD: 2.0 ML, CRD: 2.5 ML/H, ED: 1.00 ML?FREQUENCY:16H
     Route: 050
     Dates: start: 20240522, end: 20240528

REACTIONS (11)
  - Living in residential institution [Recovered/Resolved]
  - Pneumonia aspiration [Unknown]
  - Pneumonia [Not Recovered/Not Resolved]
  - Dysphagia [Not Recovered/Not Resolved]
  - Akinesia [Not Recovered/Not Resolved]
  - Disease risk factor [Unknown]
  - Muscle spasms [Not Recovered/Not Resolved]
  - Musculoskeletal discomfort [Not Recovered/Not Resolved]
  - Speech disorder [Not Recovered/Not Resolved]
  - Gastrointestinal tube insertion [Not Recovered/Not Resolved]
  - Respiratory failure [Unknown]

NARRATIVE: CASE EVENT DATE: 20240501
